FAERS Safety Report 8257577-8 (Version None)
Quarter: 2012Q2

REPORT INFORMATION
  Report Type: 
  Country: None (occurrence: None)
  Receive Date: 20120403
  Receipt Date: 20120323
  Transmission Date: 20120825
  Serious: Yes (Death, Life-Threatening, Hospitalization)
  Sender: FDA-Public Use
  Company Number: JP-MPIJNJ-2011-05444

PATIENT

DRUGS (9)
  1. CALCIUM CARBONATE [Concomitant]
     Indication: RENAL FAILURE CHRONIC
     Dosage: 500 MG, QD
     Route: 048
     Dates: start: 20100302
  2. ONEALFA [Concomitant]
     Indication: RENAL FAILURE CHRONIC
     Dosage: 0.5 MG, QD
     Route: 048
     Dates: start: 20100302
  3. DECADRON [Concomitant]
     Indication: MULTIPLE MYELOMA
     Dosage: 8 MG, QD
     Route: 048
     Dates: start: 20111019, end: 20111027
  4. LANSOPRAZOLE [Concomitant]
     Indication: RENAL FAILURE CHRONIC
     Dosage: 15 MG, QD
     Route: 048
     Dates: start: 20081126
  5. LANTUS [Concomitant]
     Indication: DIABETES MELLITUS
     Dosage: UNK
     Route: 042
     Dates: start: 20100727
  6. VELCADE [Suspect]
     Indication: MULTIPLE MYELOMA
     Dosage: 1.3 MG/M2, UNK
     Route: 042
     Dates: start: 20111018, end: 20111028
  7. VALTREX [Concomitant]
     Indication: MULTIPLE MYELOMA
     Dosage: 500 MG, QD
     Route: 048
     Dates: start: 20111018, end: 20111101
  8. ASPIRIN [Concomitant]
     Indication: RENAL FAILURE CHRONIC
     Dosage: 100 MG, QD
     Route: 048
     Dates: start: 20081126
  9. NOVORAPID [Concomitant]
     Indication: DIABETES MELLITUS
     Dosage: UNK
     Route: 058
     Dates: start: 20100914

REACTIONS (4)
  - RECTAL CANCER [None]
  - MULTIPLE MYELOMA [None]
  - RECTAL ULCER HAEMORRHAGE [None]
  - PLATELET COUNT DECREASED [None]
